FAERS Safety Report 4280908-0 (Version None)
Quarter: 2004Q1

REPORT INFORMATION
  Report Type: 
  Country: None (occurrence: None)
  Receive Date: 20040127
  Receipt Date: 20040109
  Transmission Date: 20041129
  Serious: Yes (Hospitalization)
  Sender: FDA-Public Use
  Company Number: 158881

PATIENT
  Age: 62 Year
  Sex: Female
  Weight: 54.4316 kg

DRUGS (5)
  1. AVONEX [Suspect]
     Indication: MULTIPLE SCLEROSIS
     Dosage: 30 MCG QW IM
     Dates: start: 20011008, end: 20031001
  2. AVONEX [Suspect]
     Indication: MULTIPLE SCLEROSIS
     Dosage: 30 MCG QW IM
     Dates: start: 20031001
  3. METOCLOPRAMIDE [Concomitant]
  4. PRILOSEC [Concomitant]
  5. PROPULSID [Concomitant]

REACTIONS (15)
  - ABDOMINAL ABSCESS [None]
  - CATARACT [None]
  - CONDITION AGGRAVATED [None]
  - DEPRESSION [None]
  - FALL [None]
  - HIP FRACTURE [None]
  - HYPERPARATHYROIDISM [None]
  - HYPERSENSITIVITY [None]
  - HYPERTENSION [None]
  - INJECTION SITE PAIN [None]
  - MULTIPLE SCLEROSIS [None]
  - PANCREATIC DISORDER [None]
  - PANCREATIC FISTULA [None]
  - SINUS CONGESTION [None]
  - WEIGHT DECREASED [None]
